FAERS Safety Report 5307884-3 (Version None)
Quarter: 2007Q2

REPORT INFORMATION
  Report Type: 
  Country: None (occurrence: None)
  Receive Date: 20070420
  Receipt Date: 20070406
  Transmission Date: 20071010
  Serious: Yes (Life-Threatening, Hospitalization)
  Sender: FDA-Public Use
  Company Number: 2007000503

PATIENT
  Age: 76 Year
  Sex: Male

DRUGS (4)
  1. ERLOTINIB (TABLET) [Suspect]
     Indication: NON-SMALL CELL LUNG CANCER
     Dosage: 150 MG QD, ORAL
     Route: 048
     Dates: start: 20061212, end: 20070208
  2. BEVACIZUMAB (INJECTION FOR INFUSION) [Suspect]
     Indication: NON-SMALL CELL LUNG CANCER
     Dosage: 1290 MG Q3W, INTRAVENOUS
     Route: 042
     Dates: start: 20061212, end: 20070208
  3. BEVACIZUMAB (INJECTION FOR INFUSION) [Suspect]
  4. BEVACIZUMAB (INJECTION FOR INFUSION) [Suspect]

REACTIONS (1)
  - PULMONARY EMBOLISM [None]
